FAERS Safety Report 18479923 (Version 4)
Quarter: 2021Q1

REPORT INFORMATION
  Report Type: Report from Study
  Country: CA (occurrence: CA)
  Receive Date: 20201109
  Receipt Date: 20210209
  Transmission Date: 20210419
  Serious: Yes (Other)
  Sender: FDA-Public Use
  Company Number: CA-GLAXOSMITHKLINE-CA2020AMR218597

PATIENT
  Sex: Female
  Weight: 58 kg

DRUGS (6)
  1. ADVAIR HFA [Suspect]
     Active Substance: FLUTICASONE PROPIONATE\SALMETEROL XINAFOATE
     Indication: ASTHMA
     Dosage: 2 DF, BID, 250/50 MCG
  2. BRICANYL [Suspect]
     Active Substance: TERBUTALINE SULFATE
     Indication: PRODUCT USED FOR UNKNOWN INDICATION
     Dosage: UNK
  3. SALBUTAMOL SULPHATE [Suspect]
     Active Substance: ALBUTEROL SULFATE
     Indication: ASTHMA
     Dosage: UNK, PRN (AS REQUIRED)
  4. MONTELUKAST [Suspect]
     Active Substance: MONTELUKAST SODIUM
     Indication: PRODUCT USED FOR UNKNOWN INDICATION
     Dosage: UNK
  5. SINGULAIR [Suspect]
     Active Substance: MONTELUKAST SODIUM
     Indication: ASTHMA
     Dosage: 10 MG, QD
  6. PREDNISONE. [Suspect]
     Active Substance: PREDNISONE
     Indication: ASTHMA
     Dosage: 7.5 MG, QD

REACTIONS (17)
  - Sleep disorder due to a general medical condition [Unknown]
  - Rash [Unknown]
  - Blood count abnormal [Unknown]
  - Eosinophilic granulomatosis with polyangiitis [Unknown]
  - Arthritis [Unknown]
  - Dyspnoea [Unknown]
  - Loss of personal independence in daily activities [Unknown]
  - Foot fracture [Unknown]
  - Nasal obstruction [Unknown]
  - Asthma [Unknown]
  - Wheezing [Unknown]
  - Condition aggravated [Unknown]
  - Skin discolouration [Unknown]
  - Angina pectoris [Unknown]
  - Sinusitis [Unknown]
  - Cardiac disorder [Unknown]
  - Quality of life decreased [Unknown]

NARRATIVE: CASE EVENT DATE: 2001
